FAERS Safety Report 5049861-6 (Version None)
Quarter: 2006Q3

REPORT INFORMATION
  Report Type: 
  Country: None (occurrence: None)
  Receive Date: 20060706
  Receipt Date: 20060623
  Transmission Date: 20061208
  Serious: Yes (Other)
  Sender: FDA-Public Use
  Company Number: A-US2006-12463

PATIENT
  Age: 77 Year
  Sex: Female
  Weight: 72.6 kg

DRUGS (14)
  1. TRACLEER [Suspect]
     Indication: PULMONARY HYPERTENSION
     Dosage: SEE IMAGE
     Route: 048
     Dates: start: 20060207, end: 20060306
  2. TRACLEER [Suspect]
     Indication: PULMONARY HYPERTENSION
     Dosage: SEE IMAGE
     Route: 048
     Dates: start: 20060307
  3. CAPTOPRIL [Concomitant]
  4. EVISTA [Concomitant]
  5. HYDRALAZINE HCL [Concomitant]
  6. AVAPRO [Concomitant]
  7. COREG [Concomitant]
  8. BUMETANIDE [Concomitant]
  9. LEVOXYL [Concomitant]
  10. NEXIUM [Concomitant]
  11. MECLOZINE (MECLOZINE) [Concomitant]
  12. XANAX [Concomitant]
  13. HYDROCODONE BITARTRATE [Concomitant]
  14. OXYGEN (OXYGEN) [Concomitant]

REACTIONS (1)
  - PANCYTOPENIA [None]
